FAERS Safety Report 4563083-4 (Version None)
Quarter: 2005Q1

REPORT INFORMATION
  Report Type: 
  Country: None (occurrence: None)
  Receive Date: 20050125
  Receipt Date: 20050119
  Transmission Date: 20050727
  Serious: Yes (Hospitalization, Disabling)
  Sender: FDA-Public Use
  Company Number: THQ2004A00951

PATIENT
  Age: 59 Year
  Sex: Male

DRUGS (2)
  1. LANSOPRAZOLE [Suspect]
     Indication: REFLUX OESOPHAGITIS
     Dosage: 15 MG (15 MG, 1 IN 1 D)
     Dates: start: 20000810, end: 20001018
  2. NITROMINT (GLYCERYL TRINITRATE) [Concomitant]

REACTIONS (2)
  - ARTHRALGIA [None]
  - DELUSIONAL DISORDER, PERSECUTORY TYPE [None]
